FAERS Safety Report 7367938-7 (Version None)
Quarter: 2011Q1

REPORT INFORMATION
  Report Type: 
  Country: None (occurrence: None)
  Receive Date: 20110322
  Receipt Date: 20110308
  Transmission Date: 20110831
  Serious: Yes (Hospitalization)
  Sender: FDA-Public Use
  Company Number: PHHY2011NL19839

PATIENT
  Sex: Male

DRUGS (18)
  1. ZOMETA [Suspect]
     Indication: PROSTATE CANCER METASTATIC
     Dosage: 4 MG/5ML
     Route: 042
     Dates: start: 20100409
  2. OXYNORM [Concomitant]
  3. METFORMIN [Concomitant]
  4. DEXAMETHASONE [Concomitant]
  5. BETAHISTINE [Concomitant]
  6. LISINOPRIL [Concomitant]
  7. MACROGOL [Concomitant]
  8. VALACICLOVIR [Concomitant]
  9. CALCICHEW D3 [Concomitant]
  10. SIMVASTATIN [Concomitant]
  11. LACTULOSE [Concomitant]
  12. PREDNISONE [Concomitant]
  13. OMEPRAZOLE [Concomitant]
  14. DICLOFENAC [Concomitant]
  15. NOVOMIX [Concomitant]
  16. FENTANYL [Concomitant]
  17. MICROLAX [Concomitant]
  18. CHEMOTHERAPEUTICS,OTHER [Concomitant]

REACTIONS (4)
  - CONSTIPATION [None]
  - DEHYDRATION [None]
  - FEELING ABNORMAL [None]
  - ORAL HERPES [None]
